FAERS Safety Report 8356851-4 (Version None)
Quarter: 2012Q2

REPORT INFORMATION
  Report Type: 
  Country: None (occurrence: None)
  Receive Date: 20120510
  Receipt Date: 20120503
  Transmission Date: 20120825
  Serious: Yes (Hospitalization)
  Sender: FDA-Public Use
  Company Number: 2012SP000258

PATIENT
  Age: 41 Year
  Sex: Female
  Weight: 54.4316 kg

DRUGS (3)
  1. NITROGLYCERIN [Suspect]
     Indication: MYOCARDIAL INFARCTION
     Dates: start: 20100113
  2. NUVARING [Suspect]
     Indication: CONTRACEPTION
     Dates: start: 20090501, end: 20100101
  3. ELAVIL [Concomitant]

REACTIONS (9)
  - HEADACHE [None]
  - BREAST CALCIFICATIONS [None]
  - BRONCHIOLITIS [None]
  - ACUTE MYOCARDIAL INFARCTION [None]
  - MATERNAL EXPOSURE BEFORE PREGNANCY [None]
  - BUNION OPERATION [None]
  - MIGRAINE [None]
  - PREGNANCY [None]
  - CORONARY ARTERY DISEASE [None]
